FAERS Safety Report 16166019 (Version 1)
Quarter: 2019Q2

REPORT INFORMATION
  Report Type: Spontaneous
  Country: IT (occurrence: IT)
  Receive Date: 20190406
  Receipt Date: 20190406
  Transmission Date: 20190711
  Serious: Yes (Other)
  Sender: FDA-Public Use
  Company Number: IT-ALEXION PHARMACEUTICALS INC.-A201905132

PATIENT
  Sex: Male

DRUGS (1)
  1. SOLIRIS [Suspect]
     Active Substance: ECULIZUMAB
     Indication: PAROXYSMAL NOCTURNAL HAEMOGLOBINURIA
     Dosage: UNK
     Route: 065
     Dates: start: 2005

REACTIONS (7)
  - Necrotising fasciitis [Unknown]
  - Bone marrow failure [Unknown]
  - Budd-Chiari syndrome [Unknown]
  - Abdominal pain [Unknown]
  - Pyrexia [Unknown]
  - Crohn^s disease [Unknown]
  - Cytopenia [Unknown]

NARRATIVE: CASE EVENT DATE: 2007
